FAERS Safety Report 18120310 (Version 5)
Quarter: 2020Q4

REPORT INFORMATION
  Report Type: Other
  Country: DE (occurrence: DE)
  Receive Date: 20200806
  Receipt Date: 20201019
  Transmission Date: 20210113
  Serious: Yes (Hospitalization)
  Sender: FDA-Public Use
  Company Number: DE-ROCHE-2650536

PATIENT
  Age: 60 Year
  Sex: Male
  Weight: 59 kg

DRUGS (13)
  1. RISEDRON [Concomitant]
     Active Substance: RISEDRONATE SODIUM
     Indication: OSTEOPOROSIS
     Route: 048
     Dates: start: 1999
  2. KORTISON [Concomitant]
     Active Substance: CORTISONE ACETATE
     Indication: MULTIPLE SCLEROSIS
  3. MICRONOR [Concomitant]
     Active Substance: NORETHINDRONE
     Indication: BLADDER DISORDER
     Route: 048
     Dates: start: 20200124
  4. AVONEX [Concomitant]
     Active Substance: INTERFERON BETA-1A
     Dates: start: 20080219, end: 20140619
  5. OCRELIZUMAB. [Suspect]
     Active Substance: OCRELIZUMAB
     Indication: RELAPSING MULTIPLE SCLEROSIS
     Route: 042
     Dates: start: 20190620, end: 20190704
  6. SERTRALINE [Concomitant]
     Active Substance: SERTRALINE HYDROCHLORIDE
     Indication: DEPRESSION
     Route: 048
     Dates: start: 20080807
  7. PANTOZOLE [Concomitant]
     Active Substance: PANTOPRAZOLE SODIUM
     Route: 048
  8. NITROXOLINE [Concomitant]
     Active Substance: NITROXOLINE
  9. OCRELIZUMAB. [Suspect]
     Active Substance: OCRELIZUMAB
     Route: 042
     Dates: start: 20200128
  10. PEGINTERFERON BETA-1A [Concomitant]
     Active Substance: PEGINTERFERON BETA-1A
     Dates: start: 20140930, end: 201806
  11. INTERFERON BETA-1B [Concomitant]
     Active Substance: INTERFERON BETA-1B
     Dates: start: 20070201, end: 20080114
  12. DICLOFENAC [Concomitant]
     Active Substance: DICLOFENAC
     Indication: PAIN
     Route: 048
     Dates: start: 2000
  13. SATIVEX [Concomitant]
     Active Substance: NABIXIMOLS
     Indication: SLEEP DISORDER
     Route: 055
     Dates: start: 20181025

REACTIONS (7)
  - Bladder dysfunction [Recovered/Resolved]
  - Confusional state [Unknown]
  - Epilepsy [Recovered/Resolved with Sequelae]
  - Cystitis [Recovered/Resolved]
  - Hypertension [Recovered/Resolved]
  - Urinary tract infection [Recovered/Resolved]
  - Circulatory collapse [Recovered/Resolved]

NARRATIVE: CASE EVENT DATE: 20200424
